FAERS Safety Report 21935835 (Version 1)
Quarter: 2023Q1

REPORT INFORMATION
  Report Type: Spontaneous
  Country: IE (occurrence: None)
  Receive Date: 20230201
  Receipt Date: 20230201
  Transmission Date: 20230417
  Serious: Yes (Hospitalization)
  Sender: FDA-Public Use
  Company Number: 2023A019204

PATIENT
  Sex: Male

DRUGS (4)
  1. DAPAGLIFLOZIN [Suspect]
     Active Substance: DAPAGLIFLOZIN
     Route: 048
  2. ATORVASTATIN [Concomitant]
     Active Substance: ATORVASTATIN
     Dosage: GENERIC, 80 (UNIT NOT PROVIDED)
  3. GLUCOPHAGE [Concomitant]
     Active Substance: METFORMIN HYDROCHLORIDE
     Dosage: GENERIC,500 + 1000 (UNIT NOT PROVIDED)
  4. LOSARTAN [Concomitant]
     Active Substance: LOSARTAN
     Dosage: GENERIC, 100 (UNIT NOT PROVIDED)

REACTIONS (2)
  - Road traffic accident [Recovering/Resolving]
  - Diabetic ketoacidosis [Recovering/Resolving]
